FAERS Safety Report 14576267 (Version 1)
Quarter: 2018Q1

REPORT INFORMATION
  Report Type: Spontaneous
  Country: US (occurrence: US)
  Receive Date: 20180226
  Receipt Date: 20180226
  Transmission Date: 20180509
  Serious: Yes (Hospitalization)
  Sender: FDA-Public Use
  Company Number: None

PATIENT
  Age: 70 Year
  Sex: Female
  Weight: 42.8 kg

DRUGS (19)
  1. OXYCODONE [Concomitant]
     Active Substance: OXYCODONE
  2. ACETAMINOPHEN. [Concomitant]
     Active Substance: ACETAMINOPHEN
  3. PSEUDOEPHEDRINE [Concomitant]
     Active Substance: PSEUDOEPHEDRINE
  4. CHOLECALCIFEROL (VITAMIN D) [Concomitant]
  5. POTASSIUM [Concomitant]
     Active Substance: POTASSIUM
  6. CHEMORADIATION [Suspect]
     Active Substance: UNSPECIFIED INGREDIENT
     Dosage: 5DAY/WEEK EXTERNAL BEAM
  7. METOCLOPRAMIDE. [Concomitant]
     Active Substance: METOCLOPRAMIDE
  8. VITAMIN A [Concomitant]
     Active Substance: VITAMIN A
  9. PRAVASTATIN. [Concomitant]
     Active Substance: PRAVASTATIN
  10. GEMCITABINE [Suspect]
     Active Substance: GEMCITABINE\GEMCITABINE HYDROCHLORIDE
     Indication: PANCREATIC CARCINOMA
     Dosage: 28DAYCYCLE IV
     Route: 042
     Dates: start: 20170405, end: 20170517
  11. LOSARTAN. [Concomitant]
     Active Substance: LOSARTAN
  12. B COMPLEX-ASCORBIC ACID-FOLIC ACID [Concomitant]
  13. ATENOLOL. [Concomitant]
     Active Substance: ATENOLOL
  14. LORATADINE. [Concomitant]
     Active Substance: LORATADINE
  15. OMEGA-3-DHA-EPA FISH OIL [Concomitant]
  16. ZOLPIDEM [Concomitant]
     Active Substance: ZOLPIDEM\ZOLPIDEM TARTRATE
  17. MAGNESIUM OXIDE. [Concomitant]
     Active Substance: MAGNESIUM OXIDE
  18. NAB-PACLITAXEL [Suspect]
     Active Substance: PACLITAXEL
     Indication: PANCREATIC CARCINOMA
     Dosage: 28DAYCYCLE IV
     Route: 042
     Dates: start: 20170612, end: 20170720
  19. 5-FI [Suspect]
     Active Substance: FLUOROURACIL
     Dosage: 5DAY/WEEK  IV PUMP
     Route: 042

REACTIONS (3)
  - Nausea [None]
  - Abdominal pain [None]
  - Vomiting [None]

NARRATIVE: CASE EVENT DATE: 20180221
